FAERS Safety Report 9720697 (Version 5)
Quarter: 2014Q1

REPORT INFORMATION
  Report Type: Report from Study
  Country: CA (occurrence: CA)
  Receive Date: 20131129
  Receipt Date: 20140326
  Transmission Date: 20141002
  Serious: Yes (Other)
  Sender: FDA-Public Use
  Company Number: PHHY2012CA118318

PATIENT
  Age: 46 Year
  Sex: Female

DRUGS (12)
  1. GLIVEC [Suspect]
     Indication: GASTROINTESTINAL STROMAL TUMOUR
     Dosage: 400 MG, QD
     Route: 048
     Dates: start: 201105
  2. GLIVEC [Interacting]
     Dosage: 400 MG, QD
     Route: 048
  3. GLIVEC [Interacting]
     Dosage: 400 MG, QD
     Route: 048
  4. COLESTYRAMINE [Interacting]
     Indication: DYSPEPSIA
     Dosage: UNK UKN, TID
  5. COLESTYRAMINE [Interacting]
     Dosage: UNK UKN, BID
  6. VITAMIN D [Concomitant]
     Dosage: UNK UKN, UNK
  7. VITAMIN C [Concomitant]
     Dosage: UNK UKN, UNK
     Route: 065
  8. CALTRATE [Concomitant]
     Dosage: UNK UKN, UNK
  9. CALCIUM [Concomitant]
     Dosage: UNK UKN, UNK
  10. SANDOSTATIN [Concomitant]
     Dosage: UNK UKN, UNK
  11. SANDOSTATIN [Concomitant]
     Dosage: UNK UKN, UNK
  12. SANDOSTATIN [Concomitant]
     Dosage: UNK UKN, UNK

REACTIONS (27)
  - Drug interaction [Unknown]
  - Abnormal sensation in eye [Recovered/Resolved]
  - Dysstasia [Unknown]
  - Dark circles under eyes [Unknown]
  - Irritability [Unknown]
  - Nervousness [Unknown]
  - Blood calcium abnormal [Unknown]
  - White blood cell count abnormal [Unknown]
  - Abdominal discomfort [Unknown]
  - Asthenia [Unknown]
  - Contusion [Unknown]
  - Nausea [Unknown]
  - Dizziness [Unknown]
  - Anxiety [Unknown]
  - Malaise [Unknown]
  - Lacrimation increased [Unknown]
  - Memory impairment [Unknown]
  - Weight decreased [Unknown]
  - Weight fluctuation [Unknown]
  - Vomiting [Recovered/Resolved]
  - Eye pain [Unknown]
  - Periorbital oedema [Unknown]
  - Headache [Recovered/Resolved]
  - Insomnia [Unknown]
  - Dyspnoea [Unknown]
  - Diarrhoea [Recovered/Resolved]
  - Muscle spasms [Unknown]
